FAERS Safety Report 6337097-8 (Version None)
Quarter: 2009Q3

REPORT INFORMATION
  Report Type: 
  Country: None (occurrence: None)
  Receive Date: 20090831
  Receipt Date: 20090817
  Transmission Date: 20100115
  Serious: Yes (Hospitalization)
  Sender: FDA-Public Use
  Company Number: 2008AL006585

PATIENT
  Age: 56 Year
  Sex: Male
  Weight: 96.1626 kg

DRUGS (14)
  1. DIGOXIN [Suspect]
     Dosage: 0.25MG, DAILY, PO
     Route: 048
  2. PRAVACHOL [Concomitant]
  3. TENORMIN [Concomitant]
  4. SIMAVSTATIN [Concomitant]
  5. VYTORIN [Concomitant]
  6. TOPROL-XL [Concomitant]
  7. LOVASTATIN [Concomitant]
  8. COUMADIN [Concomitant]
  9. FLOMAX [Concomitant]
  10. PEPCID AC [Concomitant]
  11. MULTI-VITAMINS [Concomitant]
  12. TAMBOCOR [Concomitant]
  13. CARDIZEM [Concomitant]
  14. AMIODARONE [Concomitant]

REACTIONS (13)
  - ABDOMINAL PAIN [None]
  - ATRIAL FIBRILLATION [None]
  - BLOOD CHOLESTEROL INCREASED [None]
  - CARDIAC FLUTTER [None]
  - DIARRHOEA [None]
  - DYSPNOEA [None]
  - INJURY [None]
  - LOSS OF CONSCIOUSNESS [None]
  - MUSCLE SPASMS [None]
  - MUSCULOSKELETAL PAIN [None]
  - PAIN [None]
  - PALPITATIONS [None]
  - TREMOR [None]
